FAERS Safety Report 5852036-1 (Version None)
Quarter: 2008Q3

REPORT INFORMATION
  Report Type: 
  Country: None (occurrence: None)
  Receive Date: 20080820
  Receipt Date: 20080808
  Transmission Date: 20090109
  Serious: Yes (Hospitalization, Other)
  Sender: FDA-Public Use
  Company Number: US-PFIZER INC-2006041219

PATIENT
  Sex: Male

DRUGS (9)
  1. NEURONTIN [Suspect]
     Indication: ANXIETY
     Route: 048
  2. COCAINE [Concomitant]
  3. ETHANOL [Concomitant]
  4. CLONAZEPAM [Concomitant]
  5. REMERON [Concomitant]
     Indication: DEPRESSION
  6. SEROQUEL [Concomitant]
  7. PROTONIX [Concomitant]
     Dosage: DAILY DOSE:40MG
  8. THIAMINE HCL [Concomitant]
  9. FOLATE [Concomitant]

REACTIONS (3)
  - DRUG INEFFECTIVE [None]
  - INTENTIONAL SELF-INJURY [None]
  - SUICIDE ATTEMPT [None]
